FAERS Safety Report 5232222-4 (Version None)
Quarter: 2007Q1

REPORT INFORMATION
  Report Type: 
  Country: None (occurrence: None)
  Receive Date: 20070207
  Receipt Date: 20070201
  Transmission Date: 20070707
  Serious: Yes (Life-Threatening)
  Sender: FDA-Public Use
  Company Number: PHEH2007US01570

PATIENT

DRUGS (1)
  1. METHERGINE [Suspect]
     Route: 042

REACTIONS (1)
  - MEDICATION ERROR [None]
